FAERS Safety Report 6336458 (Version 4)
Quarter: 2013Q1

REPORT INFORMATION
  Report Type: Spontaneous
  Country: US (occurrence: US)
  Receive Date: 20070619
  Receipt Date: 20130319
  Transmission Date: 20140127
  Serious: Yes (Other)
  Sender: FDA-Public Use
  Company Number: US-RB-005872-07

PATIENT
  Sex: Female

DRUGS (4)
  1. SUBOXONE TABLET [Suspect]
     Route: 060
     Dates: start: 200308, end: 200607
  2. SUBOXONE TABLET [Suspect]
     Indication: DRUG DEPENDENCE
     Route: 060
     Dates: start: 200607, end: 200703
  3. SUBOXONE TABLET [Suspect]
     Route: 060
     Dates: start: 200703
  4. LEXAPRO [Concomitant]
     Indication: DEPRESSION
     Dosage: DOSAGE UNKNOWN
     Route: 048

REACTIONS (5)
  - Exposure during pregnancy [Recovered/Resolved]
  - Ultrasound antenatal screen abnormal [Recovered/Resolved]
  - Amniotic fluid volume increased [Recovered/Resolved]
  - Oedema peripheral [Unknown]
  - Drug dependence [Unknown]
